FAERS Safety Report 12269631 (Version 1)
Quarter: 2016Q2

REPORT INFORMATION
  Report Type: Spontaneous
  Country: SE (occurrence: SE)
  Receive Date: 20160414
  Receipt Date: 20160414
  Transmission Date: 20160815
  Serious: Yes (Hospitalization)
  Sender: FDA-Public Use
  Company Number: SE-TEVA-650850ISR

PATIENT
  Age: 34 Year
  Sex: Male

DRUGS (2)
  1. METHOTREXATE [Suspect]
     Active Substance: METHOTREXATE
  2. CIMZIA [Suspect]
     Active Substance: CERTOLIZUMAB PEGOL

REACTIONS (1)
  - Thyroid cancer [Unknown]
